FAERS Safety Report 20390631 (Version 1)
Quarter: 2022Q1

REPORT INFORMATION
  Report Type: Spontaneous
  Country: DE (occurrence: DE)
  Receive Date: 20220128
  Receipt Date: 20220128
  Transmission Date: 20220424
  Serious: Yes (Other)
  Sender: FDA-Public Use
  Company Number: DE-MYLANLABS-2022M1007322

PATIENT
  Age: 4 Year
  Sex: Male

DRUGS (1)
  1. BACLOFEN [Suspect]
     Active Substance: BACLOFEN
     Indication: Muscle spasticity
     Dosage: BACLOFEN PUMP; FLUCTUATING SYMPTOMS RESULTED TO FREQUENT REPROGRAMMING ??..
     Route: 037

REACTIONS (6)
  - Device failure [Recovered/Resolved]
  - Accidental overdose [Recovered/Resolved]
  - Accidental underdose [Recovered/Resolved]
  - Muscular weakness [Unknown]
  - Condition aggravated [Unknown]
  - Muscle spasticity [Unknown]
